FAERS Safety Report 8118844-1 (Version None)
Quarter: 2012Q1

REPORT INFORMATION
  Report Type: 
  Country: None (occurrence: None)
  Receive Date: 20120207
  Receipt Date: 20120126
  Transmission Date: 20120608
  Serious: Yes (Other)
  Sender: FDA-Public Use
  Company Number: FR-ELI_LILLY_AND_COMPANY-FR201201008742

PATIENT
  Age: 40 Year
  Sex: Male

DRUGS (3)
  1. AVASTIN [Concomitant]
  2. ALIMTA [Suspect]
     Dosage: UNK, UNKNOWN
     Route: 042
  3. CISPLATIN [Concomitant]

REACTIONS (3)
  - PALPITATIONS [None]
  - ERYTHEMA [None]
  - SYNCOPE [None]
